FAERS Safety Report 21243113 (Version 4)
Quarter: 2023Q4

REPORT INFORMATION
  Report Type: Spontaneous
  Country: US (occurrence: US)
  Receive Date: 20220823
  Receipt Date: 20231124
  Transmission Date: 20240110
  Serious: Yes (Other)
  Sender: FDA-Public Use
  Company Number: US-BAYER-2022A112792

PATIENT
  Age: 31 Year
  Sex: Female
  Weight: 47.619 kg

DRUGS (2)
  1. GADAVIST [Suspect]
     Active Substance: GADOBUTROL
     Indication: Magnetic resonance imaging
     Dosage: UNK UNK, ONCE, DOUBLE DOSE
     Dates: start: 202112, end: 202112
  2. GADAVIST [Suspect]
     Active Substance: GADOBUTROL
     Indication: Magnetic resonance imaging
     Dosage: UNK
     Dates: start: 20220413, end: 20220413

REACTIONS (19)
  - Contrast media toxicity [Not Recovered/Not Resolved]
  - Headache [None]
  - Dizziness [None]
  - Weight decreased [None]
  - Skin burning sensation [None]
  - Muscle atrophy [None]
  - Myalgia [None]
  - Visual impairment [None]
  - Bone pain [None]
  - Muscle twitching [None]
  - Rash [None]
  - Tinnitus [None]
  - Sinus disorder [None]
  - Abdominal pain upper [None]
  - Memory impairment [None]
  - Incorrect dose administered [None]
  - Incorrect dose administered [None]
  - Product prescribing issue [None]
  - Contrast media deposition [None]

NARRATIVE: CASE EVENT DATE: 20211201
